FAERS Safety Report 7629239-9 (Version None)
Quarter: 2011Q3

REPORT INFORMATION
  Report Type: 
  Country: None (occurrence: None)
  Receive Date: 20110722
  Receipt Date: 20110718
  Transmission Date: 20111222
  Serious: Yes (Death)
  Sender: FDA-Public Use
  Company Number: PHHY2010ES61651

PATIENT
  Age: 35 Year
  Sex: Male

DRUGS (1)
  1. EXFORGE [Suspect]
     Indication: HYPERTENSION
     Dosage: VALSARTAN 160MG AND AMLODIPINE 05MG, ONCE DAILY

REACTIONS (2)
  - ISCHAEMIC CARDIOMYOPATHY [None]
  - CHEST PAIN [None]
